FAERS Safety Report 18565199 (Version 2)
Quarter: 2020Q4

REPORT INFORMATION
  Report Type: Report from Study
  Country: IT (occurrence: IT)
  Receive Date: 20201201
  Receipt Date: 20201204
  Transmission Date: 20210114
  Serious: Yes (Life-Threatening)
  Sender: FDA-Public Use
  Company Number: IT-PFIZER INC-2020466910

PATIENT

DRUGS (6)
  1. DEXAMETHASONE ACETATE [Concomitant]
     Active Substance: DEXAMETHASONE ACETATE
     Indication: PROPHYLAXIS OF NAUSEA AND VOMITING
  2. FOLINIC ACID [Suspect]
     Active Substance: LEUCOVORIN
     Dosage: 100 MG/M2, CYCLIC (INTRAVENOUS INFUSION FOR 120 MINUTES ON DAYS 1)
     Route: 042
  3. FLUOROURACIL. [Suspect]
     Active Substance: FLUOROURACIL
     Dosage: 400 MG/M2, CYCLIC,  ON DAY 1 AND DAY 2
     Route: 040
  4. FLUOROURACIL. [Suspect]
     Active Substance: FLUOROURACIL
     Dosage: 600 MG/M2, CYCLIC (INTRAVENOUS CONTINUOUS INFUSION LASTING 22 HOURS ON DAYS 1 AND 2)
     Route: 042
  5. IRINOTECAN HCL [Suspect]
     Active Substance: IRINOTECAN HYDROCHLORIDE
     Indication: GASTRIC CANCER
     Dosage: 180 MG/M2, CYCLIC (INFUSION, 60 MINUTES ON DAY 1)
     Route: 042
  6. ATROPINE [ATROPINE SULFATE] [Concomitant]
     Indication: CHOLINERGIC SYNDROME
     Dosage: 0.25 MG
     Route: 058

REACTIONS (1)
  - Neutropenia [Unknown]
